FAERS Safety Report 25956753 (Version 4)
Quarter: 2025Q4

REPORT INFORMATION
  Report Type: Spontaneous
  Country: US (occurrence: US)
  Receive Date: 20251024
  Receipt Date: 20251124
  Transmission Date: 20260118
  Serious: No
  Sender: PFIZER
  Company Number: US-PFIZER INC-202500199476

PATIENT
  Age: 14 Year
  Sex: Male

DRUGS (3)
  1. GENOTROPIN [Suspect]
     Active Substance: SOMATROPIN
     Indication: Short stature
     Dosage: 2.8MG/3.0MG SQ ALTERNATING, 6 DAYS/WEEK
     Route: 058
  2. GENOTROPIN [Suspect]
     Active Substance: SOMATROPIN
     Dosage: 2.8MG/3.0MG SQ ALTERNATING, 6 DAYS/WEEK
     Route: 058
  3. VITAMINS NOS [Concomitant]
     Active Substance: VITAMINS
     Dosage: 2 DF (TWO TABLETS), DAILY, TAKING FOR ABOUT A MONTH
     Route: 048
     Dates: start: 2025

REACTIONS (2)
  - Injection site discharge [Unknown]
  - Device leakage [Unknown]

NARRATIVE: CASE EVENT DATE: 20251021
